FAERS Safety Report 12402132 (Version 6)
Quarter: 2016Q4

REPORT INFORMATION
  Report Type: Spontaneous
  Country: GR (occurrence: GR)
  Receive Date: 20160525
  Receipt Date: 20161222
  Transmission Date: 20170207
  Serious: Yes (Hospitalization, Other)
  Sender: FDA-Public Use
  Company Number: GR-ABBVIE-16P-066-1636622-00

PATIENT
  Age: 42 Year
  Sex: Male

DRUGS (1)
  1. KLARICID [Suspect]
     Active Substance: CLARITHROMYCIN
     Indication: PRODUCT USED FOR UNKNOWN INDICATION
     Route: 065
     Dates: end: 20160515

REACTIONS (2)
  - Mobility decreased [Recovering/Resolving]
  - Hypoaesthesia [Recovering/Resolving]
